FAERS Safety Report 4292188-0 (Version None)
Quarter: 2004Q1

REPORT INFORMATION
  Report Type: 
  Country: None (occurrence: None)
  Receive Date: 20040126
  Receipt Date: 20030821
  Transmission Date: 20041129
  Serious: No
  Sender: FDA-Public Use
  Company Number: USA030742002

PATIENT
  Age: 56 Year
  Sex: Male
  Weight: 68 kg

DRUGS (1)
  1. FORTEO [Suspect]
     Indication: OSTEOPOROSIS
     Dosage: 20UG/DAY
     Dates: start: 20030401

REACTIONS (4)
  - FOOD INTOLERANCE [None]
  - ILL-DEFINED DISORDER [None]
  - PAIN [None]
  - WEIGHT DECREASED [None]
